FAERS Safety Report 8088679-7 (Version None)
Quarter: 2012Q1

REPORT INFORMATION
  Report Type: 
  Country: None (occurrence: None)
  Receive Date: 20120128
  Receipt Date: 20110412
  Transmission Date: 20120608
  Serious: Yes (Other)
  Sender: FDA-Public Use
  Company Number: US-ABBOTT-11P-163-0718624-00

PATIENT
  Sex: Female
  Weight: 108.96 kg

DRUGS (13)
  1. CELEXA [Concomitant]
     Indication: PRODUCT USED FOR UNKNOWN INDICATION
  2. NOVOLOG [Concomitant]
     Indication: DIABETES MELLITUS
  3. HUMIRA [Suspect]
     Indication: PSORIASIS
     Dates: start: 20110201, end: 20110316
  4. LOTREL [Concomitant]
     Indication: HYPERTENSION
     Dosage: 10/40 MG DAILY
  5. NEURONTIN [Concomitant]
     Indication: BONE PAIN
  6. XANAX [Concomitant]
     Indication: ANXIETY
  7. OXYCODONE HCL [Concomitant]
     Indication: PRODUCT USED FOR UNKNOWN INDICATION
     Dosage: 4 TABS DAILY
  8. HYDROCHLOROTHIAZIDE [Concomitant]
     Indication: PRODUCT USED FOR UNKNOWN INDICATION
  9. PROMETHAZINE [Concomitant]
     Indication: PRODUCT USED FOR UNKNOWN INDICATION
  10. CYCLOBENZAPRINE [Concomitant]
     Indication: PRODUCT USED FOR UNKNOWN INDICATION
     Dosage: 1-2 AT BEDTIME
  11. AMITRIPTYLINE HCL [Concomitant]
     Indication: PRODUCT USED FOR UNKNOWN INDICATION
     Dosage: 2 TABS DAILY AT BEDTIME
  12. POTASSIUM [Concomitant]
     Indication: MINERAL SUPPLEMENTATION
  13. LANTUS [Concomitant]
     Indication: DIABETES MELLITUS

REACTIONS (2)
  - PSORIASIS [None]
  - COLON CANCER [None]
